FAERS Safety Report 13969197 (Version 2)
Quarter: 2017Q3

REPORT INFORMATION
  Report Type: Spontaneous
  Country: CH (occurrence: CH)
  Receive Date: 20170914
  Receipt Date: 20170921
  Transmission Date: 20171128
  Serious: Yes (Death)
  Sender: FDA-Public Use
  Company Number: CH-CELGENEUS-CHE-20170902617

PATIENT
  Age: 65 Year
  Sex: Male

DRUGS (2)
  1. ABRAXANE [Suspect]
     Active Substance: PACLITAXEL
     Indication: PANCREATIC CARCINOMA METASTATIC
     Dosage: 125 MILLIGRAM/SQ. METER
     Route: 041
     Dates: start: 20170112, end: 20170331
  2. GEMZAR [Concomitant]
     Active Substance: GEMCITABINE HYDROCHLORIDE
     Indication: PRODUCT USED FOR UNKNOWN INDICATION
     Route: 065

REACTIONS (1)
  - Pancreatic carcinoma metastatic [Fatal]

NARRATIVE: CASE EVENT DATE: 20170414
